FAERS Safety Report 15634545 (Version 2)
Quarter: 2018Q4

REPORT INFORMATION
  Report Type: Spontaneous
  Country: TH (occurrence: TH)
  Receive Date: 20181119
  Receipt Date: 20181127
  Transmission Date: 20190205
  Serious: Yes (Death)
  Sender: FDA-Public Use
  Company Number: PHHY2018TH155253

PATIENT
  Age: 63 Year
  Sex: Male

DRUGS (2)
  1. AFINITOR [Suspect]
     Active Substance: EVEROLIMUS
     Dosage: 5 MG, UNK
     Route: 065
     Dates: start: 20170302
  2. AFINITOR [Suspect]
     Active Substance: EVEROLIMUS
     Indication: METASTATIC RENAL CELL CARCINOMA
     Dosage: 10 MG, UNK
     Route: 065
     Dates: start: 20170127

REACTIONS (11)
  - Back pain [Fatal]
  - Haemoglobin decreased [Fatal]
  - Leukocytosis [Fatal]
  - Haematocrit decreased [Fatal]
  - Fatigue [Fatal]
  - Anaemia [Fatal]
  - Metastatic renal cell carcinoma [Fatal]
  - Diarrhoea [Fatal]
  - Mucosal inflammation [Fatal]
  - White blood cell count increased [Fatal]
  - Malignant neoplasm progression [Fatal]

NARRATIVE: CASE EVENT DATE: 20170302
